FAERS Safety Report 10138078 (Version 1)
Quarter: 2014Q2

REPORT INFORMATION
  Report Type: Report from Study
  Country: TW (occurrence: TW)
  Receive Date: 20140429
  Receipt Date: 20140429
  Transmission Date: 20141212
  Serious: Yes (Death)
  Sender: FDA-Public Use
  Company Number: TW-B.I. PHARMACEUTICALS,INC./RIDGEFIELD-2014-BI-18898GD

PATIENT
  Sex: 0

DRUGS (5)
  1. DIPYRIDAMOLE [Suspect]
     Indication: ANTICOAGULANT THERAPY
     Dosage: 4 MG/KG
     Route: 048
  2. CYCLOSPORINE [Suspect]
     Indication: IMMUNOSUPPRESSANT DRUG THERAPY
     Route: 065
  3. MYCOPHENOLATE MOFETIL [Suspect]
     Indication: IMMUNOSUPPRESSANT DRUG THERAPY
     Dosage: 10 MG/KG
     Route: 065
  4. METHYLPREDNISOLONE [Suspect]
     Indication: IMMUNOSUPPRESSANT DRUG THERAPY
     Dosage: 20 MG/KG DURING SURGERY, REDUCED TO 3 MG/KG ON POD 1, THEN GRADUALLY TAPERED TO 0.5 MG/KG ON POD 6
     Route: 042
  5. HEPARIN [Suspect]
     Indication: ANTICOAGULANT THERAPY
     Dosage: TO MAINTAIN PROTHROMBIN TIME AND ACTIVATED COAGULATION TIME AT AROUND 15 AND 150 SEC, RESPECTIVELY
     Route: 065

REACTIONS (3)
  - Liver transplant rejection [Fatal]
  - Liver transplant rejection [Fatal]
  - Hepatic vein thrombosis [Fatal]
